FAERS Safety Report 25429954 (Version 2)
Quarter: 2025Q3

REPORT INFORMATION
  Report Type: Spontaneous
  Country: US (occurrence: US)
  Receive Date: 20250612
  Receipt Date: 20250718
  Transmission Date: 20251020
  Serious: Yes (Other)
  Sender: AMGEN
  Company Number: US-AMGEN-USASP2025111979

PATIENT
  Age: 52 Year
  Sex: Female

DRUGS (3)
  1. TEPEZZA [Suspect]
     Active Substance: TEPROTUMUMAB-TRBW
     Indication: Toxic goitre
     Route: 040
  2. TEPEZZA [Suspect]
     Active Substance: TEPROTUMUMAB-TRBW
     Dosage: 1720 MILLIGRAM, Q3WK (1720MG EVERY 3 WEEKS (DOSE 2-8))
     Route: 040
     Dates: start: 20250513
  3. TEPEZZA [Suspect]
     Active Substance: TEPROTUMUMAB-TRBW
     Dosage: 1720 MILLIGRAM, Q3WK (1720MG EVERY 3 WEEKS (DOSE 2-8))
     Route: 040
     Dates: start: 20250604

REACTIONS (1)
  - Blood glucose increased [Recovered/Resolved]

NARRATIVE: CASE EVENT DATE: 20250603
